FAERS Safety Report 9275656 (Version 1)
Quarter: 2013Q2

REPORT INFORMATION
  Report Type: Spontaneous
  Country: US (occurrence: US)
  Receive Date: 20130507
  Receipt Date: 20130507
  Transmission Date: 20140414
  Serious: Yes (Other)
  Sender: FDA-Public Use
  Company Number: US-SANOFI-AVENTIS-2013SA045677

PATIENT
  Age: 53 Year
  Sex: Male
  Weight: 86.18 kg

DRUGS (3)
  1. PLAVIX [Suspect]
     Route: 048
  2. LISINOPRIL [Concomitant]
  3. PITAVASTATIN CALCIUM [Concomitant]

REACTIONS (5)
  - Implantable defibrillator insertion [Unknown]
  - Thrombosis [Unknown]
  - Haemorrhage [Unknown]
  - Cognitive disorder [Unknown]
  - Contusion [Unknown]
